FAERS Safety Report 23084714 (Version 3)
Quarter: 2024Q2

REPORT INFORMATION
  Report Type: Spontaneous
  Country: JP (occurrence: JP)
  Receive Date: 20231019
  Receipt Date: 20240408
  Transmission Date: 20240715
  Serious: Yes (Death, Life-Threatening, Hospitalization, Other)
  Sender: FDA-Public Use
  Company Number: JP-DSJP-DSJ-2023-142779

PATIENT
  Age: 68 Year
  Sex: Female
  Weight: 48.2 kg

DRUGS (20)
  1. ENHERTU [Suspect]
     Active Substance: FAM-TRASTUZUMAB DERUXTECAN-NXKI
     Indication: HER2 positive breast cancer
     Dosage: 5.4 MG/KG, ONCE EVERY 3 WK
     Route: 041
     Dates: start: 20230705, end: 20230705
  2. ENHERTU [Suspect]
     Active Substance: FAM-TRASTUZUMAB DERUXTECAN-NXKI
     Dosage: 4.4 MG/KG, ONCE EVERY 3 WK
     Route: 041
     Dates: start: 20230726, end: 20230726
  3. ENHERTU [Suspect]
     Active Substance: FAM-TRASTUZUMAB DERUXTECAN-NXKI
     Dosage: 4.4 MG/KG, ONCE EVERY 3 WK
     Route: 041
     Dates: start: 20230816, end: 20230816
  4. ENHERTU [Suspect]
     Active Substance: FAM-TRASTUZUMAB DERUXTECAN-NXKI
     Dosage: 4.4 MG/KG, ONCE EVERY 3 WK
     Route: 041
     Dates: start: 20230906, end: 20230906
  5. ENHERTU [Suspect]
     Active Substance: FAM-TRASTUZUMAB DERUXTECAN-NXKI
     Dosage: 4.4 MG/KG, ONCE EVERY 3 WK
     Route: 041
     Dates: start: 20230927, end: 20230927
  6. DECADRON [Concomitant]
     Active Substance: DEXAMETHASONE
     Indication: Antiemetic supportive care
     Dosage: 4 MG, BID 3 DAYS FROM THE DAY AFTER ADMINISTRATION
     Route: 048
     Dates: start: 20230706, end: 20231015
  7. LAFUTIDINE [Concomitant]
     Active Substance: LAFUTIDINE
     Indication: Gastritis
     Dosage: 10 MG, BID
     Route: 048
     Dates: start: 20230705, end: 20231015
  8. URSODIOL [Concomitant]
     Active Substance: URSODIOL
     Indication: Liver disorder
     Dosage: 100 MG, TID
     Route: 048
     Dates: start: 20230705, end: 20231015
  9. ROSUVASTATIN CALCIUM [Concomitant]
     Active Substance: ROSUVASTATIN CALCIUM
     Indication: Hyperlipidaemia
     Dosage: 10 MG, QD
     Route: 048
     Dates: start: 20230705, end: 20231015
  10. CHLORPROMAZINE HIBENZATE [Concomitant]
     Active Substance: CHLORPROMAZINE HIBENZATE
     Indication: Antiemetic supportive care
     Dosage: 50 MG, BID
     Route: 048
     Dates: start: 20230714, end: 20231015
  11. TIZANIDINE HYDROCHLORIDE [Concomitant]
     Active Substance: TIZANIDINE HYDROCHLORIDE
     Indication: Product used for unknown indication
     Dosage: 1 MG, BID
     Route: 048
     Dates: start: 20230714, end: 20230728
  12. TRAVELMIN [DIPHENHYDRAMINE SALICYLATE;DIPROPHYLLINE] [Concomitant]
     Indication: Antiemetic supportive care
     Dosage: 1 DF, QD
     Route: 048
     Dates: start: 20230714, end: 20230728
  13. KYTRIL [Concomitant]
     Active Substance: GRANISETRON HYDROCHLORIDE
     Indication: Antiemetic supportive care
     Dosage: 1 MG, QD
     Route: 048
     Dates: start: 20230714, end: 20231015
  14. POTASSIUM ASPARTATE [Concomitant]
     Active Substance: POTASSIUM ASPARTATE
     Indication: Hypokalaemia
     Dosage: 300 MG, TID
     Route: 048
     Dates: start: 20230726, end: 20230816
  15. MAGNESIUM OXIDE [Concomitant]
     Active Substance: MAGNESIUM OXIDE
     Indication: Constipation
     Dosage: 330 MG, TID ADJUST ACCORDINGLY
     Route: 048
     Dates: start: 20230705, end: 20231015
  16. DAYVIGO [Concomitant]
     Active Substance: LEMBOREXANT
     Indication: Insomnia
     Dosage: 5 MG, QD
     Route: 048
     Dates: start: 20230728, end: 20231015
  17. NAUZELIN [Concomitant]
     Active Substance: DOMPERIDONE
     Indication: Antiemetic supportive care
     Dosage: 10 MG, AS NEEDED
     Route: 048
     Dates: start: 20230705, end: 20231015
  18. LOPERAMIDE HYDROCHLORIDE [Concomitant]
     Active Substance: LOPERAMIDE HYDROCHLORIDE
     Indication: Diarrhoea
     Dosage: 1 MG, AS NEEDED
     Route: 048
     Dates: start: 20230726, end: 20231015
  19. GRANISETRON HYDROCHLORIDE [Concomitant]
     Active Substance: GRANISETRON HYDROCHLORIDE
     Indication: Product used for unknown indication
     Dosage: UNK
     Route: 065
     Dates: start: 20230927
  20. DEXAMETHASONE SODIUM PHOSPHATE [Concomitant]
     Active Substance: DEXAMETHASONE PHOSPHATE\DEXAMETHASONE SODIUM PHOSPHATE
     Indication: Product used for unknown indication
     Dosage: UNK
     Route: 065
     Dates: start: 20230927

REACTIONS (5)
  - Acute respiratory distress syndrome [Fatal]
  - Interstitial lung disease [Fatal]
  - Nausea [Unknown]
  - Vomiting [Unknown]
  - Diarrhoea [Unknown]

NARRATIVE: CASE EVENT DATE: 20230701
